FAERS Safety Report 8877620 (Version 1)
Quarter: 2012Q4

REPORT INFORMATION
  Report Type: Spontaneous
  Country: US (occurrence: None)
  Receive Date: 20121031
  Receipt Date: 20121031
  Transmission Date: 20130627
  Serious: Yes (Other)
  Sender: FDA-Public Use
  Company Number: None

PATIENT
  Age: 58 Year
  Sex: Male
  Weight: 99.79 kg

DRUGS (1)
  1. FENTANYL TRANSDERMAL SYSTEM [Suspect]
     Indication: PROSTATE CANCER METASTATIC
     Dosage: 3 PATCHES EVERY 36 HOURS
     Dates: start: 20121018, end: 20121021

REACTIONS (4)
  - Product substitution issue [None]
  - Drug ineffective [None]
  - Product quality issue [None]
  - Pain [None]
